FAERS Safety Report 5966842-6 (Version None)
Quarter: 2008Q4

REPORT INFORMATION
  Report Type: 
  Country: None (occurrence: None)
  Receive Date: 20081125
  Receipt Date: 20081118
  Transmission Date: 20090506
  Serious: Yes (Other)
  Sender: FDA-Public Use
  Company Number: US-GENENTECH-271666

PATIENT
  Sex: Male
  Weight: 85.261 kg

DRUGS (1)
  1. AVASTIN [Suspect]
     Indication: COLORECTAL CANCER METASTATIC
     Dosage: 10 MG/KG, Q2W
     Route: 042
     Dates: start: 20070625, end: 20080915

REACTIONS (1)
  - CENTRAL NERVOUS SYSTEM NECROSIS [None]
